FAERS Safety Report 20871338 (Version 1)
Quarter: 2022Q2

REPORT INFORMATION
  Report Type: Report from Study
  Country: US (occurrence: US)
  Receive Date: 20220525
  Receipt Date: 20220525
  Transmission Date: 20220721
  Serious: Yes (Other)
  Sender: FDA-Public Use
  Company Number: US-BRISTOL-MYERS SQUIBB COMPANY-2022-039669

PATIENT
  Age: 64 Year
  Sex: Female
  Weight: 60.7 kg

DRUGS (1)
  1. REVLIMID [Suspect]
     Active Substance: LENALIDOMIDE
     Indication: Primary amyloidosis
     Dosage: FOR 21 DAYS
     Route: 048
     Dates: start: 2016

REACTIONS (2)
  - Spinal fracture [Unknown]
  - Intentional product use issue [Unknown]
